FAERS Safety Report 11913315 (Version 3)
Quarter: 2017Q1

REPORT INFORMATION
  Report Type: Report from Study
  Country: JP (occurrence: JP)
  Receive Date: 20160113
  Receipt Date: 20170322
  Transmission Date: 20170428
  Serious: Yes (Death, Hospitalization, Other)
  Sender: FDA-Public Use
  Company Number: JP-INCYTE CORPORATION-2015IN000787

PATIENT
  Age: 72 Year
  Sex: Male

DRUGS (1)
  1. JAKAVI [Suspect]
     Active Substance: RUXOLITINIB
     Indication: PRIMARY MYELOFIBROSIS
     Dosage: 5 MG, BID
     Route: 048
     Dates: start: 20141212, end: 20150623

REACTIONS (6)
  - Liver function test abnormal [Not Recovered/Not Resolved]
  - Myelofibrosis [Fatal]
  - Liver disorder [Unknown]
  - Blast cell count increased [Fatal]
  - Haemochromatosis [Fatal]
  - Blood pressure decreased [Unknown]

NARRATIVE: CASE EVENT DATE: 20150623
